FAERS Safety Report 4286799-6 (Version None)
Quarter: 2004Q1

REPORT INFORMATION
  Report Type: 
  Country: None (occurrence: None)
  Receive Date: 20040206
  Receipt Date: 20031030
  Transmission Date: 20041129
  Serious: Yes (Hospitalization)
  Sender: FDA-Public Use
  Company Number: SE-ROCHE-350282

PATIENT
  Age: 17 Year
  Sex: Female

DRUGS (2)
  1. ISOTRETINOIN [Suspect]
     Route: 048
     Dates: start: 20031001, end: 20031007
  2. TRINOVUM [Concomitant]

REACTIONS (11)
  - ABDOMINAL PAIN UPPER [None]
  - ANXIETY [None]
  - COMA [None]
  - CONVULSION [None]
  - DYSPNOEA [None]
  - FATIGUE [None]
  - HEADACHE [None]
  - INCOHERENT [None]
  - MUSCULOSKELETAL PAIN [None]
  - MYALGIA [None]
  - PAIN [None]
